FAERS Safety Report 8096222-1 (Version None)
Quarter: 2012Q1

REPORT INFORMATION
  Report Type: 
  Country: None (occurrence: None)
  Receive Date: 20120129
  Receipt Date: 20111221
  Transmission Date: 20120608
  Serious: No
  Sender: FDA-Public Use
  Company Number: US-ABBOTT-11P-163-0885756-00

PATIENT
  Age: 55 Year
  Sex: Female

DRUGS (2)
  1. HUMIRA [Suspect]
     Indication: GRANULOMA ANNULARE
     Dosage: SKIPPED A DOSE
     Dates: start: 20110818
  2. HUMIRA [Suspect]

REACTIONS (4)
  - BACK PAIN [None]
  - DIARRHOEA [None]
  - RECTAL HAEMORRHAGE [None]
  - GRANULOMA ANNULARE [None]
